FAERS Safety Report 6354676-2 (Version None)
Quarter: 2009Q3

REPORT INFORMATION
  Report Type: 
  Country: None (occurrence: None)
  Receive Date: 20090909
  Receipt Date: 20090826
  Transmission Date: 20100115
  Serious: Yes (Death, Other)
  Sender: FDA-Public Use
  Company Number: 2009-03551

PATIENT
  Age: 64 Year
  Sex: Female
  Weight: 52 kg

DRUGS (2)
  1. VELCADE [Suspect]
     Indication: MULTIPLE MYELOMA
     Dosage: 1.8 MG, INTRAVENOUS
     Route: 042
     Dates: start: 20070416, end: 20070830
  2. PREDONINE-1 (PREDNISOLONE ACETATE) [Concomitant]

REACTIONS (3)
  - DISEASE PROGRESSION [None]
  - HERPES ZOSTER DISSEMINATED [None]
  - PLATELET COUNT DECREASED [None]
